FAERS Safety Report 14285392 (Version 1)
Quarter: 2017Q4

REPORT INFORMATION
  Report Type: Spontaneous
  Country: US (occurrence: US)
  Receive Date: 20171214
  Receipt Date: 20171214
  Transmission Date: 20180321
  Serious: Yes (Disabling)
  Sender: FDA-Public Use
  Company Number: None

PATIENT
  Age: 67 Year
  Sex: Male
  Weight: 73.35 kg

DRUGS (5)
  1. GARLIC. [Concomitant]
     Active Substance: GARLIC
  2. IBPROPHEN [Concomitant]
  3. ZINC. [Concomitant]
     Active Substance: ZINC
  4. TERBINAFINE. [Suspect]
     Active Substance: TERBINAFINE
     Indication: ONYCHOMYCOSIS
     Dosage: ?          QUANTITY:1 TABLET(S);?
     Route: 048
     Dates: start: 20170909, end: 20171101
  5. VITAMIN B12 [Concomitant]
     Active Substance: CYANOCOBALAMIN

REACTIONS (5)
  - Depression [None]
  - Weight decreased [None]
  - Anxiety [None]
  - Sleep disorder [None]
  - Ageusia [None]

NARRATIVE: CASE EVENT DATE: 20171103
